FAERS Safety Report 7105555-4 (Version None)
Quarter: 2010Q4

REPORT INFORMATION
  Report Type: 
  Country: None (occurrence: None)
  Receive Date: 20101110
  Receipt Date: 20101025
  Transmission Date: 20110411
  Serious: No
  Sender: FDA-Public Use
  Company Number: APP201000880

PATIENT
  Age: 55 Year
  Sex: Female

DRUGS (4)
  1. HYDRALAZINE HYDROCHLORIDE [Suspect]
     Indication: PRODUCT USED FOR UNKNOWN INDICATION
     Dosage: 25 MG BID
     Dates: start: 20050101
  2. PERINDOPRIL [Concomitant]
  3. AMLODIPINE [Concomitant]
  4. ATENOLOL [Concomitant]

REACTIONS (6)
  - ANTI-NEUTROPHIL CYTOPLASMIC ANTIBODY POSITIVE VASCULITIS [None]
  - AUTOIMMUNE PANCYTOPENIA [None]
  - CARDIAC MURMUR [None]
  - GLOMERULONEPHRITIS RAPIDLY PROGRESSIVE [None]
  - HAEMODIALYSIS [None]
  - LUPUS-LIKE SYNDROME [None]
